FAERS Safety Report 8959697 (Version 1)
Quarter: 2012Q4

REPORT INFORMATION
  Report Type: 
  Country: US (occurrence: US)
  Receive Date: 20121212
  Receipt Date: 20121212
  Transmission Date: 20130627
  Serious: No
  Sender: FDA-Public Use
  Company Number: US-TEVA-352756USA

PATIENT
  Sex: Male

DRUGS (2)
  1. BUDESONIDE [Suspect]
     Indication: PRODUCT USED FOR UNKNOWN INDICATION
  2. BROVANA [Suspect]
     Dosage: 30 Microgram Daily;
     Route: 055
     Dates: start: 201204

REACTIONS (2)
  - Varicose vein [Unknown]
  - Oedema peripheral [Unknown]
